FAERS Safety Report 9469610 (Version 1)
Quarter: 2013Q3

REPORT INFORMATION
  Report Type: Spontaneous
  Country: CN (occurrence: CN)
  Receive Date: 20130822
  Receipt Date: 20130822
  Transmission Date: 20140515
  Serious: Yes (Other)
  Sender: FDA-Public Use
  Company Number: CN-BRISTOL-MYERS SQUIBB COMPANY-19199389

PATIENT
  Age: 27 Year
  Sex: Female

DRUGS (3)
  1. METFORMIN HCL TABS [Suspect]
     Indication: POLYCYSTIC OVARIES
     Dosage: DOSE WAS DECREASED TO 0.25 G BID
     Route: 048
     Dates: start: 20120516, end: 20120601
  2. METFORMIN HCL TABS [Suspect]
     Indication: INSULIN RESISTANCE
     Dosage: DOSE WAS DECREASED TO 0.25 G BID
     Route: 048
     Dates: start: 20120516, end: 20120601
  3. MENOTROPINS [Suspect]
     Indication: POLYCYSTIC OVARIES
     Dosage: MENOTROPINS FOR INJECTION
     Route: 030
     Dates: start: 20120509, end: 20120519

REACTIONS (3)
  - Nausea [Recovered/Resolved]
  - Decreased appetite [Recovered/Resolved]
  - Vomiting [Recovered/Resolved]
